FAERS Safety Report 16771033 (Version 4)
Quarter: 2020Q4

REPORT INFORMATION
  Report Type: Report from Study
  Country: None (occurrence: US)
  Receive Date: 20190904
  Receipt Date: 20201231
  Transmission Date: 20210113
  Serious: Yes (Other)
  Sender: FDA-Public Use
  Company Number: US-ABBVIE-18K-163-2506024-00

PATIENT
  Sex: Male
  Weight: 93.07 kg

DRUGS (4)
  1. VENCLEXTA [Suspect]
     Active Substance: VENETOCLAX
     Indication: ESSENTIAL HYPERTENSION
     Dosage: TAKE 2 TABLETS BY MOUTH DAILY
     Route: 048
  2. VENCLEXTA [Suspect]
     Active Substance: VENETOCLAX
     Indication: MYELODYSPLASTIC SYNDROME
     Dosage: TAKE TWO PILLS FOR 14 DAYS
     Route: 048
     Dates: start: 201809
  3. VENCLEXTA [Suspect]
     Active Substance: VENETOCLAX
     Route: 048
  4. LISINOPRIL. [Concomitant]
     Active Substance: LISINOPRIL
     Indication: PRODUCT USED FOR UNKNOWN INDICATION
     Route: 048

REACTIONS (3)
  - Off label use [Unknown]
  - Spinal fracture [Not Recovered/Not Resolved]
  - Influenza [Unknown]
